FAERS Safety Report 5308691-8 (Version None)
Quarter: 2007Q2

REPORT INFORMATION
  Report Type: 
  Country: None (occurrence: None)
  Receive Date: 20070426
  Receipt Date: 20070420
  Transmission Date: 20071010
  Serious: Yes (Life-Threatening, Hospitalization)
  Sender: FDA-Public Use
  Company Number: JP-JPN-A200604802

PATIENT
  Age: 37 Year
  Sex: Male

DRUGS (13)
  1. EPIVIR [Suspect]
     Indication: HIV INFECTION
     Dosage: 150MG TWICE PER DAY
     Route: 048
     Dates: start: 20060406, end: 20060422
  2. EPZICOM [Suspect]
     Indication: HIV INFECTION
     Route: 048
     Dates: start: 20060511
  3. KALETRA [Suspect]
     Indication: HIV INFECTION
     Route: 048
     Dates: start: 20060406, end: 20060422
  4. ZERIT [Suspect]
     Indication: HIV INFECTION
     Dosage: 30MG PER DAY
     Route: 048
     Dates: start: 20060406, end: 20060422
  5. BAKTAR [Suspect]
     Indication: PNEUMOCYSTIS JIROVECI PNEUMONIA
     Route: 048
     Dates: start: 20060323, end: 20060427
  6. DIFLUCAN [Suspect]
     Indication: ORAL CANDIDIASIS
     Dosage: 100MG PER DAY
     Route: 048
     Dates: start: 20060413, end: 20060510
  7. STOCRIN [Concomitant]
     Indication: HIV INFECTION
     Route: 048
     Dates: end: 20060511
  8. ITRACONAZOLE [Concomitant]
     Indication: ORAL CANDIDIASIS
     Dosage: 100MG PER DAY
     Route: 048
     Dates: start: 20060323, end: 20060827
  9. GASTER [Concomitant]
     Indication: GASTRITIS
     Dosage: 10MG PER DAY
     Route: 048
     Dates: start: 20060323, end: 20060406
  10. PREDONINE [Concomitant]
     Indication: PNEUMOCYSTIS JIROVECI PNEUMONIA
     Dosage: 40MG PER DAY
     Route: 048
     Dates: start: 20060325, end: 20060529
  11. MYSLEE [Concomitant]
     Indication: INSOMNIA
     Dosage: 10MG PER DAY
     Route: 048
     Dates: start: 20060323, end: 20060328
  12. FUNGIZONE [Concomitant]
     Indication: ORAL CANDIDIASIS
     Dosage: 3ML PER DAY
     Route: 048
     Dates: start: 20060323, end: 20061022
  13. BENAMBAX [Concomitant]
     Indication: PNEUMOCYSTIS JIROVECI PNEUMONIA
     Dosage: 200MG PER DAY
     Route: 055
     Dates: start: 20060414, end: 20060522

REACTIONS (5)
  - DYSGEUSIA [None]
  - GENERAL PHYSICAL HEALTH DETERIORATION [None]
  - INFECTION [None]
  - LIVER FUNCTION TEST ABNORMAL [None]
  - NEUTROPENIA [None]
